FAERS Safety Report 6868686-X (Version None)
Quarter: 2010Q3

REPORT INFORMATION
  Report Type: 
  Country: None (occurrence: None)
  Receive Date: 20100721
  Receipt Date: 20100721
  Transmission Date: 20110219
  Serious: Yes (Other)
  Sender: FDA-Public Use
  Company Number: None

PATIENT
  Age: 56 Year
  Sex: Male
  Weight: 54.4316 kg

DRUGS (1)
  1. BETIMOL [Suspect]
     Indication: GLAUCOMA
     Dosage: 1 DROP 2 TIMES A DAY 5 OR 6 MONTH

REACTIONS (5)
  - APPLICATION SITE PAIN [None]
  - LACRIMATION INCREASED [None]
  - NASAL CONGESTION [None]
  - PHOTOPHOBIA [None]
  - VISUAL ACUITY REDUCED [None]
